FAERS Safety Report 10335700 (Version 2)
Quarter: 2014Q3

REPORT INFORMATION
  Report Type: Spontaneous
  Country: US (occurrence: US)
  Receive Date: 20140723
  Receipt Date: 20140723
  Transmission Date: 20150326
  Serious: No
  Sender: FDA-Public Use
  Company Number: US-BRISTOL-MYERS SQUIBB COMPANY-19019132

PATIENT
  Age: 11 Year
  Sex: Male
  Weight: 56.69 kg

DRUGS (1)
  1. COUMADIN [Suspect]
     Active Substance: WARFARIN SODIUM
     Indication: MITRAL VALVE REPLACEMENT
     Dosage: ALTERNATIVELY  TAKING 3.5MG ONE DAY AND 3MG THE NEXT DAY
     Dates: start: 2004

REACTIONS (4)
  - International normalised ratio increased [Unknown]
  - Musculoskeletal chest pain [Unknown]
  - Vomiting [Unknown]
  - Diarrhoea [Unknown]

NARRATIVE: CASE EVENT DATE: 20130622
